FAERS Safety Report 7860233-9 (Version None)
Quarter: 2011Q4

REPORT INFORMATION
  Report Type: 
  Country: None (occurrence: None)
  Receive Date: 20111027
  Receipt Date: 20111024
  Transmission Date: 20120403
  Serious: Yes (Other)
  Sender: FDA-Public Use
  Company Number: US-BAYER-2011-087955

PATIENT
  Age: 59 Year
  Sex: Male
  Weight: 125 kg

DRUGS (24)
  1. SARGRAMOSTIM [Suspect]
     Dosage: 250 ?G, QD
     Route: 058
     Dates: start: 20110819, end: 20110901
  2. SARGRAMOSTIM [Suspect]
     Dosage: 250 ?G, QD
     Route: 058
     Dates: start: 20110415, end: 20110428
  3. MDX-010 [Suspect]
     Dosage: 10 MG/KG, ONCE
     Route: 042
     Dates: start: 20110909, end: 20110909
  4. MDX-010 [Suspect]
     Dosage: 10 MG/KG, ONCE
     Route: 042
     Dates: start: 20110415, end: 20110415
  5. MULTI-VITAMIN [Concomitant]
     Dosage: UNK
     Dates: start: 20101025
  6. BENADRYL [Concomitant]
     Dosage: UNK
     Dates: start: 20110416
  7. RESTRIL [Concomitant]
  8. SARGRAMOSTIM [Suspect]
     Dosage: 250 ?G, QD
     Route: 058
     Dates: start: 20110708, end: 20110721
  9. SARGRAMOSTIM [Suspect]
     Dosage: 250 ?G, QD
     Route: 058
     Dates: start: 20110325, end: 20110407
  10. MDX-010 [Suspect]
     Indication: MALIGNANT MELANOMA
     Dosage: 10 MG/KG, ONCE
     Route: 042
     Dates: start: 20110729, end: 20110729
  11. MDX-010 [Suspect]
     Dosage: 10 MG/KG, ONCE
     Route: 042
     Dates: start: 20110819, end: 20110819
  12. SARGRAMOSTIM [Suspect]
     Dosage: 125 ?G, QD
     Route: 058
     Dates: start: 20110909
  13. SARGRAMOSTIM [Suspect]
     Dosage: 250 ?G, QD
     Route: 058
     Dates: start: 20110304, end: 20110317
  14. COMBIGAN [Concomitant]
     Dosage: UNK
     Dates: start: 20101117
  15. SARGRAMOSTIM [Suspect]
     Dosage: 250 ?G, QD
     Route: 058
     Dates: start: 20110506, end: 20110519
  16. MDX-010 [Suspect]
     Dosage: 10 MG/KG, ONCE
     Route: 042
     Dates: start: 20110708, end: 20110708
  17. MDX-010 [Suspect]
     Dosage: 10 MG/KG, ONCE
     Route: 042
     Dates: start: 20110617, end: 20110617
  18. MDX-010 [Suspect]
     Dosage: 10 MG/KG, ONCE
     Route: 042
     Dates: start: 20110527, end: 20110527
  19. MDX-010 [Suspect]
     Dosage: 10 MG/KG, ONCE
     Route: 042
     Dates: start: 20110325, end: 20110325
  20. MDX-010 [Suspect]
     Dosage: 10 MG/KG, ONCE
     Route: 042
     Dates: start: 20110506, end: 20110506
  21. SARGRAMOSTIM [Suspect]
     Indication: MALIGNANT MELANOMA
     Dosage: 250 ?G, QD
     Route: 058
     Dates: start: 20110729, end: 20110811
  22. SARGRAMOSTIM [Suspect]
     Dosage: 250 ?G, QD
     Route: 058
     Dates: start: 20110617, end: 20110630
  23. SARGRAMOSTIM [Suspect]
     Dosage: 250 ?G, QD
     Route: 058
     Dates: start: 20110527, end: 20110609
  24. MDX-010 [Suspect]
     Dosage: 10 MG/KG, ONCE
     Route: 042
     Dates: start: 20110304, end: 20110304

REACTIONS (3)
  - DECREASED APPETITE [None]
  - JOINT RANGE OF MOTION DECREASED [None]
  - ADRENAL INSUFFICIENCY [None]
